FAERS Safety Report 8362900-X (Version None)
Quarter: 2012Q2

REPORT INFORMATION
  Report Type: 
  Country: None (occurrence: None)
  Receive Date: 20120514
  Receipt Date: 20120501
  Transmission Date: 20120825
  Serious: Yes (Hospitalization, Other)
  Sender: FDA-Public Use
  Company Number: 2011MA015550

PATIENT
  Sex: Female
  Weight: 15.8759 kg

DRUGS (15)
  1. CPEP [Concomitant]
  2. TOBI [Concomitant]
  3. PULMOZYME NEBULIZER [Concomitant]
  4. VIVONEX [Concomitant]
  5. PANCRECARB MS4 [Concomitant]
  6. BACTRIM [Concomitant]
  7. CLARITIN [Concomitant]
  8. ZANTAC [Concomitant]
  9. ALBUTEROL [Concomitant]
  10. METOCLOPRAMIDE [Suspect]
     Indication: GASTROOESOPHAGEAL REFLUX DISEASE
     Dates: start: 20040401, end: 20100301
  11. ZENPEP [Concomitant]
  12. PEDIASURE [Concomitant]
  13. TOLEREX [Concomitant]
  14. CIPROFLOXACIN HCL [Concomitant]
  15. TYLENOL W/ CODEINE [Concomitant]

REACTIONS (19)
  - ECONOMIC PROBLEM [None]
  - ANHEDONIA [None]
  - UPPER RESPIRATORY TRACT INFECTION [None]
  - MALNUTRITION [None]
  - CYSTIC FIBROSIS [None]
  - DYSARTHRIA [None]
  - RETCHING [None]
  - FAILURE TO THRIVE [None]
  - PANCREATIC INSUFFICIENCY [None]
  - COUGH [None]
  - OESOPHAGOGASTRIC FUNDOPLASTY [None]
  - DYSTONIA [None]
  - SPEECH DISORDER [None]
  - EMOTIONAL DISORDER [None]
  - INCORRECT DRUG ADMINISTRATION DURATION [None]
  - CONVULSION [None]
  - GROWTH RETARDATION [None]
  - TREATMENT NONCOMPLIANCE [None]
  - DECREASED APPETITE [None]
